FAERS Safety Report 24740136 (Version 3)
Quarter: 2025Q1

REPORT INFORMATION
  Report Type: Spontaneous
  Country: US (occurrence: US)
  Receive Date: 20241216
  Receipt Date: 20250114
  Transmission Date: 20250409
  Serious: No
  Sender: APOTEX
  Company Number: US-APOTEX-2024AP019141

PATIENT
  Sex: Female

DRUGS (1)
  1. BUTORPHANOL TARTRATE [Suspect]
     Active Substance: BUTORPHANOL TARTRATE
     Indication: Product used for unknown indication
     Route: 045
     Dates: start: 202411

REACTIONS (6)
  - Product dose omission issue [Unknown]
  - Product storage error [Unknown]
  - Product closure issue [Unknown]
  - Device leakage [Unknown]
  - Product packaging quantity issue [Unknown]
  - Product label issue [Unknown]

NARRATIVE: CASE EVENT DATE: 20241101
